FAERS Safety Report 20157086 (Version 1)
Quarter: 2021Q4

REPORT INFORMATION
  Report Type: Spontaneous
  Country: US (occurrence: US)
  Receive Date: 20211207
  Receipt Date: 20211207
  Transmission Date: 20220303
  Serious: Yes (Other)
  Sender: FDA-Public Use
  Company Number: US-IBSA PHARMA INC.-2021CHE000042

PATIENT

DRUGS (23)
  1. LEVOTHYROXINE SODIUM [Suspect]
     Active Substance: LEVOTHYROXINE SODIUM
     Indication: Hypothyroidism
     Dosage: 8 ?G, UNK
     Dates: start: 202009, end: 202012
  2. LEVOTHYROXINE SODIUM [Suspect]
     Active Substance: LEVOTHYROXINE SODIUM
     Dosage: 88 ?G, UNK
  3. LEVOTHYROXINE SODIUM [Suspect]
     Active Substance: LEVOTHYROXINE SODIUM
     Dosage: 110 ?G, UNK
     Dates: start: 202012
  4. LEVOTHYROXINE SODIUM [Suspect]
     Active Substance: LEVOTHYROXINE SODIUM
     Dosage: 125 UNK, UNK
  5. LEVOTHYROXINE SODIUM [Suspect]
     Active Substance: LEVOTHYROXINE SODIUM
     Dosage: 175 UNK, UNK
  6. LEVOTHYROXINE SODIUM [Suspect]
     Active Substance: LEVOTHYROXINE SODIUM
     Dosage: 200 ?G, UNK
     Dates: start: 202104
  7. LEVOTHYROXINE SODIUM [Suspect]
     Active Substance: LEVOTHYROXINE SODIUM
     Dosage: UNK
  8. KORLYM [Suspect]
     Active Substance: MIFEPRISTONE
     Indication: Cushing^s syndrome
     Dosage: 300 MG, QD
     Route: 048
     Dates: start: 20180419, end: 20180514
  9. KORLYM [Suspect]
     Active Substance: MIFEPRISTONE
     Dosage: 600 MG, QD
     Route: 048
     Dates: start: 20180515, end: 20180716
  10. KORLYM [Suspect]
     Active Substance: MIFEPRISTONE
     Dosage: 900 MG, QD
     Route: 048
     Dates: start: 20180717, end: 20180728
  11. KORLYM [Suspect]
     Active Substance: MIFEPRISTONE
     Dosage: 900 UNK, UNK
     Route: 048
     Dates: start: 201808, end: 20180820
  12. KORLYM [Suspect]
     Active Substance: MIFEPRISTONE
     Dosage: 600 UNK, UNK
     Route: 048
     Dates: start: 20180821, end: 20190430
  13. KORLYM [Suspect]
     Active Substance: MIFEPRISTONE
     Dosage: 300 MG, UNK
     Route: 048
     Dates: start: 20190501, end: 20190521
  14. KORLYM [Suspect]
     Active Substance: MIFEPRISTONE
     Dosage: 600 MG, UNK
     Route: 048
     Dates: start: 20190522
  15. CYCLOBENZAPRINE [Concomitant]
     Active Substance: CYCLOBENZAPRINE
  16. HUMALOG [Concomitant]
     Active Substance: INSULIN LISPRO
  17. SIGNIFOR                           /05690302/ [Concomitant]
  18. LANTUS [Concomitant]
     Active Substance: INSULIN GLARGINE
  19. SPIRONOLACTONE [Concomitant]
     Active Substance: SPIRONOLACTONE
  20. FOSAMAX [Concomitant]
     Active Substance: ALENDRONATE SODIUM
  21. TRULICITY [Concomitant]
     Active Substance: DULAGLUTIDE
     Dosage: 3 MG, UNK
     Dates: start: 2020
  22. JARDIANCE [Concomitant]
     Active Substance: EMPAGLIFLOZIN
     Dosage: UNK
     Dates: start: 2020
  23. RECLAST [Concomitant]
     Active Substance: ZOLEDRONIC ACID

REACTIONS (23)
  - Bone density decreased [Unknown]
  - Lacrimation increased [Not Recovered/Not Resolved]
  - Bladder disorder [Unknown]
  - Pollakiuria [Recovering/Resolving]
  - Vascular access site swelling [Unknown]
  - Vertigo [Recovered/Resolved]
  - Renal impairment [Unknown]
  - Drug interaction [Unknown]
  - Feeling abnormal [Unknown]
  - Mood swings [Not Recovered/Not Resolved]
  - Weight increased [Not Recovered/Not Resolved]
  - Condition aggravated [Not Recovered/Not Resolved]
  - Blood glucose decreased [Recovered/Resolved]
  - Dry mouth [Unknown]
  - Oedema peripheral [Unknown]
  - Hypothyroidism [Unknown]
  - Blood glucose fluctuation [Unknown]
  - Palpitations [Recovered/Resolved]
  - Nausea [Recovering/Resolving]
  - Fatigue [Unknown]
  - Arthralgia [Unknown]
  - Insomnia [Unknown]
  - Vomiting [Unknown]

NARRATIVE: CASE EVENT DATE: 20200101
